FAERS Safety Report 9417289 (Version 1)
Quarter: 2013Q3

REPORT INFORMATION
  Report Type: Spontaneous
  Country: US (occurrence: None)
  Receive Date: 20130722
  Receipt Date: 20130722
  Transmission Date: 20140515
  Serious: Yes (Other)
  Sender: FDA-Public Use
  Company Number: None

PATIENT
  Age: 12 Year
  Sex: Male
  Weight: 55.34 kg

DRUGS (2)
  1. OXYBUTYNIN [Suspect]
     Indication: CEREBRAL PALSY
     Route: 048
  2. OXYBUTYNIN [Suspect]
     Indication: NEUROGENIC BLADDER
     Route: 048

REACTIONS (2)
  - Urticaria [None]
  - Product substitution issue [None]
